FAERS Safety Report 5312378-5 (Version None)
Quarter: 2007Q2

REPORT INFORMATION
  Report Type: 
  Country: None (occurrence: None)
  Receive Date: 20070430
  Receipt Date: 20061206
  Transmission Date: 20071010
  Serious: Yes (Hospitalization)
  Sender: FDA-Public Use
  Company Number: 2006UW27154

PATIENT
  Age: 71 Year
  Sex: Male

DRUGS (5)
  1. NEXIUM [Suspect]
     Indication: GASTROOESOPHAGEAL REFLUX DISEASE
     Dosage: 1 CAPSULE
     Route: 048
     Dates: start: 20020101, end: 20061101
  2. NEXIUM [Suspect]
     Dosage: 2 CAPSULES
     Route: 048
     Dates: start: 20061101
  3. NEXIUM [Suspect]
     Dosage: 1 CAPSULE
     Route: 048
     Dates: start: 20061101
  4. AVANDIA [Concomitant]
     Indication: ASTHMA
     Route: 055
  5. BLOOD PRESSURE PILLS [Concomitant]

REACTIONS (4)
  - ASTHENIA [None]
  - CHEST PAIN [None]
  - DECREASED APPETITE [None]
  - DYSPNOEA [None]
